FAERS Safety Report 23063272 (Version 1)
Quarter: 2023Q4

REPORT INFORMATION
  Report Type: Spontaneous
  Country: US (occurrence: US)
  Receive Date: 20231013
  Receipt Date: 20231013
  Transmission Date: 20240110
  Serious: No
  Sender: FDA-Public Use
  Company Number: US-ABBVIE-5441956

PATIENT
  Age: 72 Year
  Sex: Female

DRUGS (2)
  1. OZURDEX [Suspect]
     Active Substance: DEXAMETHASONE
     Indication: Product used for unknown indication
     Dosage: TIME INTERVAL: AS NECESSARY: 700 MICROGRAMS INTRAVITREAL IMPLANT
     Route: 031
     Dates: start: 202212, end: 202212
  2. OZURDEX [Suspect]
     Active Substance: DEXAMETHASONE
     Dosage: TIME INTERVAL: AS NECESSARY: 700 MICROGRAMS INTRAVITREAL IMPLANT
     Route: 031

REACTIONS (2)
  - Device dislocation [Unknown]
  - Corneal oedema [Unknown]

NARRATIVE: CASE EVENT DATE: 20230101
